FAERS Safety Report 6635954-6 (Version None)
Quarter: 2010Q1

REPORT INFORMATION
  Report Type: 
  Country: None (occurrence: None)
  Receive Date: 20100316
  Receipt Date: 20100308
  Transmission Date: 20100710
  Serious: Yes (Hospitalization)
  Sender: FDA-Public Use
  Company Number: US-BRISTOL-MYERS SQUIBB COMPANY-15007834

PATIENT
  Age: 62 Year
  Sex: Female

DRUGS (13)
  1. CARBOPLATIN [Suspect]
     Indication: HEAD AND NECK CANCER
     Dosage: 1 DF = 1.5 AUC, LAST DOSE ON 01-FEB-10
     Dates: start: 20100112
  2. ABRAXANE [Suspect]
     Indication: HEAD AND NECK CANCER
     Dosage: LAST DOSE ON 01-FEB-10
     Route: 042
     Dates: start: 20100112
  3. ATIVAN [Concomitant]
  4. REGLAN [Concomitant]
  5. ZANTAC [Concomitant]
  6. ZOFRAN [Concomitant]
  7. FENTANYL [Concomitant]
  8. OXYCODONE [Concomitant]
  9. ALKALOL [Concomitant]
  10. MAALOX [Concomitant]
  11. BENADRYL [Concomitant]
  12. LIDOCAINE [Concomitant]
  13. CITALOPRAM HYDROBROMIDE [Concomitant]

REACTIONS (5)
  - ABDOMINAL DISCOMFORT [None]
  - ABDOMINAL DISTENSION [None]
  - BLOOD GLUCOSE INCREASED [None]
  - NAUSEA [None]
  - VOMITING [None]
